FAERS Safety Report 19032087 (Version 1)
Quarter: 2021Q1

REPORT INFORMATION
  Report Type: Spontaneous
  Country: DE (occurrence: DE)
  Receive Date: 20210319
  Receipt Date: 20210319
  Transmission Date: 20210420
  Serious: Yes (Hospitalization, Other)
  Sender: FDA-Public Use
  Company Number: DE-TEVA-2021-DE-1890935

PATIENT
  Age: 80 Year
  Sex: Male

DRUGS (8)
  1. GALANTAMIN [Suspect]
     Active Substance: GALANTAMINE
     Dosage: 8 MILLIGRAM DAILY;  0?0?1?0,
  2. ALLOPURINOL. [Concomitant]
     Active Substance: ALLOPURINOL
     Dosage: 300 MG, 0.5?0?0?0, UNIT DOSE : 150 MG
  3. ASS 100 [Concomitant]
     Active Substance: ASPIRIN
     Dosage: 100 MILLIGRAM DAILY; 1?0?0?0,
  4. RAMIPRIL. [Concomitant]
     Active Substance: RAMIPRIL
     Dosage: 5 MILLIGRAM DAILY;  0?0?1?0,
  5. LEVOTHYROXIN?NATRIUM [Concomitant]
     Active Substance: LEVOTHYROXINE SODIUM
     Dosage: 75 MICROGRAM DAILY; 1?0?0?0,
  6. GLIMEPIRID [Concomitant]
     Active Substance: GLIMEPIRIDE
     Dosage: 1 MILLIGRAM DAILY;  1?0?0?0,
  7. PANTOPRAZOL [Concomitant]
     Active Substance: PANTOPRAZOLE SODIUM
     Dosage: 20 MG, AS NEEDED,
  8. TAMSULOSIN [Concomitant]
     Active Substance: TAMSULOSIN
     Dosage: .4 MILLIGRAM DAILY; 0?0?1?0,

REACTIONS (5)
  - Fracture [Unknown]
  - Syncope [Unknown]
  - Fall [Unknown]
  - Bradycardia [Unknown]
  - Dizziness [Unknown]
